FAERS Safety Report 8958582 (Version 1)
Quarter: 2012Q4

REPORT INFORMATION
  Report Type: Spontaneous
  Country: US (occurrence: None)
  Receive Date: 20121205
  Receipt Date: 20121205
  Transmission Date: 20130627
  Serious: Yes (Other)
  Sender: FDA-Public Use
  Company Number: None

PATIENT
  Age: 57 Year
  Sex: Female
  Weight: 61.24 kg

DRUGS (2)
  1. FLUCONAZOLE [Suspect]
     Indication: INFECTED FINGER
     Route: 048
     Dates: start: 20120928, end: 20121017
  2. FLUCONAZOLE [Suspect]
     Indication: FUNGAL INFECTION
     Route: 048
     Dates: start: 20120928, end: 20121017

REACTIONS (17)
  - Headache [None]
  - Ear pain [None]
  - Oropharyngeal pain [None]
  - Dyspepsia [None]
  - Nausea [None]
  - Constipation [None]
  - Dizziness [None]
  - Hypoacusis [None]
  - Fatigue [None]
  - Heart rate irregular [None]
  - Heart rate increased [None]
  - Decreased appetite [None]
  - Erythema [None]
  - Blister [None]
  - Skin exfoliation [None]
  - Dysphonia [None]
  - Aphonia [None]
